FAERS Safety Report 24668018 (Version 1)
Quarter: 2024Q4

REPORT INFORMATION
  Report Type: Spontaneous
  Country: US (occurrence: US)
  Receive Date: 20241127
  Receipt Date: 20241127
  Transmission Date: 20250114
  Serious: No
  Sender: TARO
  Company Number: US-TARO PHARMACEUTICALS USA INC.-2024TAR00235

PATIENT

DRUGS (1)
  1. TRIAMCINOLONE [Suspect]
     Active Substance: TRIAMCINOLONE
     Indication: Angular cheilitis
     Dosage: UNK, JUST A LITTLE TINY BIT,USED THE PRODUCT TWICE
     Route: 061
     Dates: start: 20240214, end: 202402

REACTIONS (3)
  - Oral discomfort [Recovered/Resolved]
  - Drug ineffective [Unknown]
  - Product quality issue [Unknown]

NARRATIVE: CASE EVENT DATE: 20240214
